FAERS Safety Report 6912732-1 (Version None)
Quarter: 2010Q3

REPORT INFORMATION
  Report Type: 
  Country: None (occurrence: None)
  Receive Date: 20100806
  Receipt Date: 20081014
  Transmission Date: 20110219
  Serious: No
  Sender: FDA-Public Use
  Company Number: US-PFIZER INC-2008086605

PATIENT

DRUGS (1)
  1. VORICONAZOLE [Suspect]

REACTIONS (1)
  - MEDICATION ERROR [None]
